FAERS Safety Report 21679318 (Version 1)
Quarter: 2022Q4

REPORT INFORMATION
  Report Type: Spontaneous
  Country: US (occurrence: US)
  Receive Date: 20221205
  Receipt Date: 20221205
  Transmission Date: 20230113
  Serious: No
  Sender: FDA-Public Use
  Company Number: US-STRIDES ARCOLAB LIMITED-2022SP003652

PATIENT
  Age: 67 Year
  Sex: Male

DRUGS (2)
  1. PROPAFENONE [Suspect]
     Active Substance: PROPAFENONE
     Indication: Cardiac arrest
     Dosage: 325 MILLIGRAM, FROM 2 TO 3 YEARS
     Route: 065
  2. RAMIPRIL [Concomitant]
     Active Substance: RAMIPRIL
     Indication: Product used for unknown indication
     Dosage: 5 MILLIGRAM, BID
     Route: 065

REACTIONS (1)
  - Product dose omission issue [Unknown]

NARRATIVE: CASE EVENT DATE: 20220407
